FAERS Safety Report 13317705 (Version 1)
Quarter: 2017Q1

REPORT INFORMATION
  Report Type: Spontaneous
  Country: US (occurrence: US)
  Receive Date: 20170308
  Receipt Date: 20170308
  Transmission Date: 20170428
  Serious: No
  Sender: FDA-Public Use
  Company Number: US-AMGEN-USASP2016065862

PATIENT
  Age: 67 Year
  Sex: Male

DRUGS (1)
  1. SENSIPAR [Suspect]
     Active Substance: CINACALCET HYDROCHLORIDE
     Indication: PARATHYROID DISORDER
     Dosage: 30 MG, BID
     Route: 048
     Dates: start: 2011

REACTIONS (3)
  - Off label use [Unknown]
  - Blood calcium increased [Unknown]
  - Abdominal discomfort [Unknown]
